FAERS Safety Report 17819695 (Version 1)
Quarter: 2020Q2

REPORT INFORMATION
  Report Type: Report from Study
  Country: BR (occurrence: BR)
  Receive Date: 20200524
  Receipt Date: 20200524
  Transmission Date: 20200714
  Serious: Yes (Other)
  Sender: FDA-Public Use
  Company Number: NVSC2020BR137982

PATIENT
  Sex: Female

DRUGS (1)
  1. EXELON [Suspect]
     Active Substance: RIVASTIGMINE TARTRATE
     Indication: PRODUCT USED FOR UNKNOWN INDICATION
     Dosage: 9.5 MG, QD (9.5 MG, QD PATCH 10 (CM2)) (THREE YEARS AGO)
     Route: 062

REACTIONS (4)
  - Asthenia [Unknown]
  - Drug dependence [Unknown]
  - Diverticulitis [Unknown]
  - External ear inflammation [Unknown]
